FAERS Safety Report 17164864 (Version 2)
Quarter: 2020Q1

REPORT INFORMATION
  Report Type: Spontaneous
  Country: CA (occurrence: CA)
  Receive Date: 20191217
  Receipt Date: 20200114
  Transmission Date: 20200409
  Serious: Yes (Other)
  Sender: FDA-Public Use
  Company Number: CA-GILEAD-2019-0443101

PATIENT
  Age: 47 Year
  Sex: Female

DRUGS (1)
  1. AMBRISENTAN [Suspect]
     Active Substance: AMBRISENTAN
     Indication: PULMONARY ARTERIAL HYPERTENSION
     Dosage: 5 MG, QD
     Route: 065
     Dates: start: 20191204

REACTIONS (8)
  - Haemoglobin decreased [Unknown]
  - Feeling abnormal [Not Recovered/Not Resolved]
  - White blood cell count decreased [Unknown]
  - Insomnia [Unknown]
  - Sinus disorder [Unknown]
  - Cough [Unknown]
  - Cerebral atrophy [Unknown]
  - Weight increased [Unknown]

NARRATIVE: CASE EVENT DATE: 20200107
